FAERS Safety Report 4390094-4 (Version None)
Quarter: 2004Q3

REPORT INFORMATION
  Report Type: 
  Country: None (occurrence: None)
  Receive Date: 20040706
  Receipt Date: 20040601
  Transmission Date: 20050211
  Serious: Yes (Hospitalization)
  Sender: FDA-Public Use
  Company Number: US-MERCK-0406USA00155

PATIENT
  Age: 78 Year
  Sex: Female
  Weight: 111 kg

DRUGS (8)
  1. FOSAMAX [Suspect]
     Indication: OSTEOPOROSIS
     Route: 048
     Dates: start: 20040502, end: 20040502
  2. NORVASC [Concomitant]
     Route: 065
  3. ARIMIDEX [Concomitant]
     Route: 065
  4. PLAVIX [Concomitant]
     Route: 065
  5. PEPCID [Concomitant]
     Route: 048
  6. LASIX [Concomitant]
     Route: 065
  7. CORTIFOAM [Concomitant]
     Route: 065
  8. ACCUPRIL [Concomitant]
     Route: 065

REACTIONS (6)
  - BLOOD PRESSURE SYSTOLIC INCREASED [None]
  - CHEST PAIN [None]
  - DIZZINESS [None]
  - FEELING ABNORMAL [None]
  - HEADACHE [None]
  - HYPERTENSION [None]
